FAERS Safety Report 8450234-4 (Version None)
Quarter: 2012Q2

REPORT INFORMATION
  Report Type: 
  Country: None (occurrence: None)
  Receive Date: 20120614
  Receipt Date: 20120614
  Transmission Date: 20120825
  Serious: Yes (Life-Threatening, Hospitalization)
  Sender: FDA-Public Use
  Company Number: None

PATIENT
  Age: 87 Year
  Sex: Female
  Weight: 49 kg

DRUGS (12)
  1. AMIODARONE HYDROCHLORIDE [Suspect]
     Indication: ATRIAL FIBRILLATION
     Dosage: 200 MG DAILY PO
     Route: 048
  2. LOPRESSOR 25 MG PO BID [Concomitant]
  3. CATAPRES 0.1 MG PO BID [Concomitant]
  4. LIPITOR [Concomitant]
  5. ASPIRIN 161 MG PO QD [Concomitant]
  6. LISINOPRIL [Concomitant]
  7. ACYCLOVIR 400 MG PO BID [Concomitant]
  8. PREDNISOLONE 1% TID [Concomitant]
  9. XALATAN 0.005% TO OS [Concomitant]
  10. OXYGEN AT 3 L [Concomitant]
  11. DILTIAZEM [Concomitant]
  12. COMBIGEN 5 MG BID TO OS [Concomitant]

REACTIONS (3)
  - PULMONARY TOXICITY [None]
  - ACUTE RESPIRATORY DISTRESS SYNDROME [None]
  - PULMONARY FIBROSIS [None]
